FAERS Safety Report 19751826 (Version 1)
Quarter: 2021Q3

REPORT INFORMATION
  Report Type: Spontaneous
  Country: CO (occurrence: CO)
  Receive Date: 20210826
  Receipt Date: 20210826
  Transmission Date: 20211014
  Serious: Yes (Hospitalization, Other)
  Sender: FDA-Public Use
  Company Number: CO-ASTRAZENECA-2021A697057

PATIENT
  Age: 62 Year
  Sex: Female
  Weight: 76 kg

DRUGS (17)
  1. OMEPRAZOLE. [Suspect]
     Active Substance: OMEPRAZOLE
     Dosage: UNKNOWN
     Route: 065
  2. CICLOSPORIN [Suspect]
     Active Substance: CYCLOSPORINE
     Indication: IMMUNE THROMBOCYTOPENIA
     Dosage: 50.0MG UNKNOWN
     Route: 048
  3. FLUCONAZOLE. [Suspect]
     Active Substance: FLUCONAZOLE
     Dosage: UNKNOWN
     Route: 065
  4. FUROSEMIDE. [Suspect]
     Active Substance: FUROSEMIDE
     Dosage: UNKNOWN
     Route: 065
  5. REVOLADE [Suspect]
     Active Substance: ELTROMBOPAG OLAMINE
     Indication: IMMUNE THROMBOCYTOPENIA
     Dosage: 50.0MG UNKNOWN
     Route: 048
     Dates: start: 20200609
  6. ACETAMINOPHEN. [Concomitant]
     Active Substance: ACETAMINOPHEN
  7. REVOLADE [Suspect]
     Active Substance: ELTROMBOPAG OLAMINE
     Indication: IMMUNE THROMBOCYTOPENIA
     Dosage: 25.0MG UNKNOWN
     Route: 048
     Dates: start: 20200610
  8. ERYTHROPOIETIN [Concomitant]
     Active Substance: ERYTHROPOIETIN
  9. REVOLADE [Suspect]
     Active Substance: ELTROMBOPAG OLAMINE
     Indication: IMMUNE THROMBOCYTOPENIA
     Route: 048
     Dates: start: 2017
  10. CICLOSPORIN [Suspect]
     Active Substance: CYCLOSPORINE
     Indication: IMMUNE THROMBOCYTOPENIA
     Route: 048
  11. JADENU [Suspect]
     Active Substance: DEFERASIROX
     Indication: THALASSAEMIA
     Route: 048
     Dates: start: 202107
  12. REVOLADE [Suspect]
     Active Substance: ELTROMBOPAG OLAMINE
     Indication: IMMUNE THROMBOCYTOPENIA
     Dosage: 2.0DF UNKNOWN
     Route: 048
     Dates: start: 20170517
  13. DANAZOL. [Concomitant]
     Active Substance: DANAZOL
     Route: 048
     Dates: start: 2017
  14. ACICLOVIR [Suspect]
     Active Substance: ACYCLOVIR
     Dosage: UNKNOWN
     Route: 065
  15. DANAZOL. [Concomitant]
     Active Substance: DANAZOL
     Route: 048
     Dates: start: 2020
  16. EMETONIUM IODIDE [Concomitant]
  17. REVOLADE [Suspect]
     Active Substance: ELTROMBOPAG OLAMINE
     Indication: IMMUNE THROMBOCYTOPENIA
     Dosage: 75.0MG UNKNOWN
     Route: 048
     Dates: start: 201708

REACTIONS (17)
  - Skin discolouration [Unknown]
  - Nasopharyngitis [Not Recovered/Not Resolved]
  - Platelet count decreased [Recovered/Resolved]
  - Haematochezia [Unknown]
  - Pain in extremity [Unknown]
  - Decreased immune responsiveness [Unknown]
  - Dizziness [Unknown]
  - Illness [Unknown]
  - Petechiae [Unknown]
  - Feeding disorder [Unknown]
  - Hypersomnia [Unknown]
  - Malaise [Unknown]
  - Haemoglobin decreased [Unknown]
  - Psychiatric symptom [Unknown]
  - Serum ferritin increased [Unknown]
  - Vomiting [Unknown]
  - Pallor [Unknown]

NARRATIVE: CASE EVENT DATE: 20170725
